FAERS Safety Report 6369389-0 (Version None)
Quarter: 2009Q3

REPORT INFORMATION
  Report Type: 
  Country: None (occurrence: None)
  Receive Date: 20090917
  Receipt Date: 20090910
  Transmission Date: 20100115
  Serious: Yes (Hospitalization)
  Sender: FDA-Public Use
  Company Number: 2008AL004073

PATIENT
  Age: 61 Year
  Sex: Female

DRUGS (67)
  1. DIGOXIN [Suspect]
     Dosage: 0.25MG, DAILY, PO
     Route: 048
     Dates: end: 20080501
  2. CELEXA [Concomitant]
  3. COMBIVENT [Concomitant]
  4. GLIPIZIDE [Concomitant]
  5. NEXIUM [Concomitant]
  6. EFFEXOR [Concomitant]
  7. FUROSEMIDE [Concomitant]
  8. GLUCOPHAGE [Concomitant]
  9. NOVOLIN R [Concomitant]
  10. NITROGLYCERIN [Concomitant]
  11. TOPROL-XL [Concomitant]
  12. PLAVIX [Concomitant]
  13. ASPIRIN [Concomitant]
  14. CARDIZEM [Concomitant]
  15. ZOCOR [Concomitant]
  16. VITAMIN E [Concomitant]
  17. LORAZEPAM [Concomitant]
  18. DILAUDID [Concomitant]
  19. CLOPIDOGREL [Concomitant]
  20. TOPROL-XL [Concomitant]
  21. DILTIAZEM [Concomitant]
  22. LIPITOR [Concomitant]
  23. EFFEXOR [Concomitant]
  24. ACTOS [Concomitant]
  25. METFORMIN HCL [Concomitant]
  26. FENTANYL TRANSDERMAL SYSTEM [Concomitant]
  27. MULTI-VITAMIN [Concomitant]
  28. HYDOCODONE/APAP [Concomitant]
  29. DIAZEPAM [Concomitant]
  30. CEFUROXIME [Concomitant]
  31. OXYCODONE HCL AND ACETAMINOPHEN [Concomitant]
  32. WARFARIN [Concomitant]
  33. CANASA [Concomitant]
  34. NEXIUM [Concomitant]
  35. METOPROLOL [Concomitant]
  36. NITROGLYCERIN [Concomitant]
  37. MEPERITAB [Concomitant]
  38. NITROFURANTOIN [Concomitant]
  39. TEMAZEPAM [Concomitant]
  40. ACETAMINOPHEN W/ CODEINE TAB [Concomitant]
  41. HYDROMORPHONE [Concomitant]
  42. PROPOXYPHENE-N [Concomitant]
  43. ALPRAZOLAM [Concomitant]
  44. NOVOLIN R [Concomitant]
  45. FLUCONAZOLE [Concomitant]
  46. LEVAQUIN [Concomitant]
  47. VIGAMOX [Concomitant]
  48. LANTUS [Concomitant]
  49. CARTIA XT [Concomitant]
  50. KENALOG [Concomitant]
  51. TAZITA [Concomitant]
  52. CELEXA [Concomitant]
  53. CITALOPRAM HYDROBROMIDE [Concomitant]
  54. GLUCOTROL [Concomitant]
  55. CEFUROXIME [Concomitant]
  56. BEXTRA [Concomitant]
  57. ATENOLOL [Concomitant]
  58. DETROL [Concomitant]
  59. TRAMADOL HCL [Concomitant]
  60. DOXYCYCLINE [Concomitant]
  61. IPRATROPIUM [Concomitant]
  62. ALBUTEROL [Concomitant]
  63. DITROPAN [Concomitant]
  64. CLARITIN [Concomitant]
  65. DIPHENOXYLATE HCL + ATROPINE SULFATE [Concomitant]
  66. ULTRAM [Concomitant]
  67. CEPHALEXIN [Concomitant]

REACTIONS (38)
  - ANAEMIA [None]
  - ANAL SPHINCTER ATONY [None]
  - ANGINA UNSTABLE [None]
  - ANXIETY [None]
  - APHASIA [None]
  - ARTHRALGIA [None]
  - ASTHENIA [None]
  - BACK PAIN [None]
  - BRONCHITIS [None]
  - CARDIAC FAILURE CONGESTIVE [None]
  - CARDIAC NEOPLASM UNSPECIFIED [None]
  - CHRONIC OBSTRUCTIVE PULMONARY DISEASE [None]
  - CONFUSIONAL STATE [None]
  - COORDINATION ABNORMAL [None]
  - COUGH [None]
  - DEPRESSION [None]
  - DIARRHOEA [None]
  - DIZZINESS [None]
  - ECONOMIC PROBLEM [None]
  - FALL [None]
  - GASTROINTESTINAL DISORDER [None]
  - GASTROINTESTINAL HAEMORRHAGE [None]
  - HAEMORRHOIDS [None]
  - HALLUCINATION [None]
  - HEPATIC STEATOSIS [None]
  - HYPERTENSION [None]
  - INJURY [None]
  - JOINT INJURY [None]
  - LIPOMATOUS HYPERTROPHY OF THE INTERATRIAL SEPTUM [None]
  - MELAENA [None]
  - NAUSEA [None]
  - PAIN [None]
  - POLYP [None]
  - RECTAL HAEMORRHAGE [None]
  - THERAPEUTIC AGENT TOXICITY [None]
  - TRANSIENT ISCHAEMIC ATTACK [None]
  - TYPE 2 DIABETES MELLITUS [None]
  - VOMITING [None]
